FAERS Safety Report 6713193-8 (Version None)
Quarter: 2010Q2

REPORT INFORMATION
  Report Type: 
  Country: None (occurrence: None)
  Receive Date: 20100506
  Receipt Date: 20100423
  Transmission Date: 20101027
  Serious: Yes (Hospitalization)
  Sender: FDA-Public Use
  Company Number: PHHY2009DE09328

PATIENT
  Age: 76 Year
  Sex: Female
  Weight: 45 kg

DRUGS (12)
  1. RASILEZ [Suspect]
     Indication: HYPERTENSION
     Dosage: 150 MG, QD
     Route: 048
     Dates: start: 20081201
  2. BERLTHYROX [Concomitant]
     Indication: HYPOTHYROIDISM
     Dosage: 50 UG, QD
     Route: 048
     Dates: start: 19970101
  3. CALCILAC KT [Concomitant]
     Indication: OSTEOPOROSIS
     Dosage: 500 MG, QD
     Route: 048
  4. CYNT ^LILLY^ [Concomitant]
     Indication: HYPERTENSION
     Dosage: 0.2 MG, QD
     Route: 048
     Dates: end: 20090120
  5. EXFORGE [Concomitant]
     Indication: HYPERTENSION
     Dosage: 10/160 MG
     Route: 048
     Dates: end: 20090120
  6. MAGNETRANS FORTE [Concomitant]
     Indication: MUSCLE SPASMS
     Dosage: 2 DF, QD
     Route: 048
  7. NEBIVOLOL HCL [Concomitant]
     Indication: HYPERTENSION
     Dosage: 2 DF, QD
     Route: 048
  8. NEXIUM [Concomitant]
     Indication: REFLUX OESOPHAGITIS
     Dosage: 20 MG, QD
     Route: 048
  9. PLAVIX [Concomitant]
     Indication: PROPHYLAXIS
     Dosage: 75 MG, QD
     Route: 048
  10. REMERGIL [Concomitant]
     Indication: DEPRESSION
     Dosage: 30 MG, QD
     Route: 048
  11. SIMVASTATIN [Concomitant]
     Indication: HYPERCHOLESTEROLAEMIA
     Dosage: 20 MG, QD
     Route: 048
  12. TILIDALOR [Concomitant]
     Indication: ANALGESIC DRUG LEVEL
     Dosage: 8 GTT, QD
     Route: 048

REACTIONS (2)
  - HYPOKALAEMIA [None]
  - HYPONATRAEMIA [None]
